FAERS Safety Report 13534890 (Version 2)
Quarter: 2020Q1

REPORT INFORMATION
  Report Type: Report from Study
  Country: US (occurrence: US)
  Receive Date: 20170511
  Receipt Date: 20200124
  Transmission Date: 20200409
  Serious: Yes (Other)
  Sender: FDA-Public Use
  Company Number: US-ROCHE-1929754

PATIENT

DRUGS (7)
  1. EPERTINIB [Suspect]
     Active Substance: EPERTINIB
     Dosage: ARM B AND C
     Route: 048
  2. TRASTUZUMAB. [Suspect]
     Active Substance: TRASTUZUMAB
     Indication: HER-2 POSITIVE BREAST CANCER
     Route: 058
  3. VINORELBINE [Suspect]
     Active Substance: VINORELBINE TARTRATE
     Indication: HER-2 POSITIVE BREAST CANCER
     Dosage: ON DAY 1 AND DAY 8 OF A 21 DAY CYCLE
     Route: 048
  4. EPERTINIB [Suspect]
     Active Substance: EPERTINIB
     Indication: HER-2 POSITIVE BREAST CANCER
     Dosage: ARM A
     Route: 048
  5. TRASTUZUMAB. [Suspect]
     Active Substance: TRASTUZUMAB
     Indication: HER-2 POSITIVE BREAST CANCER
     Dosage: LOADING DOSE
     Route: 042
  6. TRASTUZUMAB. [Suspect]
     Active Substance: TRASTUZUMAB
     Route: 042
  7. CAPECITABINE. [Suspect]
     Active Substance: CAPECITABINE
     Indication: HER-2 POSITIVE BREAST CANCER
     Dosage: DAILY FOR 14 DAYS FOLLOWED BY 7 DAYS REST PERIOD
     Route: 048

REACTIONS (15)
  - Diarrhoea [Unknown]
  - Hypokalaemia [Unknown]
  - Neutropenia [Unknown]
  - Blood bilirubin increased [Unknown]
  - Fatigue [Unknown]
  - Decreased appetite [Unknown]
  - Oedema peripheral [Unknown]
  - Hypophosphataemia [Unknown]
  - Palmar-plantar erythrodysaesthesia syndrome [Unknown]
  - Dyspnoea [Unknown]
  - Nausea [Unknown]
  - Vomiting [Unknown]
  - Anaemia [Unknown]
  - Alanine aminotransferase increased [Unknown]
  - Aspartate aminotransferase increased [Unknown]
